FAERS Safety Report 5464060-1 (Version None)
Quarter: 2007Q3

REPORT INFORMATION
  Report Type: 
  Country: None (occurrence: None)
  Receive Date: 20070921
  Receipt Date: 20070912
  Transmission Date: 20080115
  Serious: Yes (Death, Hospitalization, Other)
  Sender: FDA-Public Use
  Company Number: JP-JNJFOC-20070803043

PATIENT
  Sex: Female
  Weight: 40 kg

DRUGS (11)
  1. DUROTEP [Suspect]
     Indication: CANCER PAIN
     Route: 062
  2. OXYCONTIN [Concomitant]
     Indication: CANCER PAIN
     Route: 048
  3. URSO 250 [Concomitant]
     Route: 048
  4. MUCOSTA [Concomitant]
     Route: 048
  5. LANSOPRAZOLE [Concomitant]
     Route: 048
  6. RIZE [Concomitant]
     Route: 048
  7. ZOLPIDEM [Concomitant]
     Route: 048
  8. LASIX [Concomitant]
     Route: 065
  9. ALDACTONE [Concomitant]
     Route: 048
  10. FAMOTIDINE [Concomitant]
     Route: 042
  11. CEFAPICOL [Concomitant]
     Route: 042

REACTIONS (3)
  - BLOOD PRESSURE DECREASED [None]
  - HEPATIC FAILURE [None]
  - SUPRAVENTRICULAR TACHYCARDIA [None]
